FAERS Safety Report 9672334 (Version 1)
Quarter: 2013Q4

REPORT INFORMATION
  Report Type: Spontaneous
  Country: FR (occurrence: FR)
  Receive Date: 20131106
  Receipt Date: 20131106
  Transmission Date: 20140711
  Serious: Yes (Other)
  Sender: FDA-Public Use
  Company Number: FR-ELI_LILLY_AND_COMPANY-FR201310007667

PATIENT
  Sex: Male

DRUGS (4)
  1. HUMALOG 50% LISPRO, 50% NPL [Suspect]
     Indication: DIABETES MELLITUS
     Dosage: 16 U, UNK
     Route: 058
     Dates: start: 2013, end: 2013
  2. HUMALOG LISPRO [Suspect]
     Indication: DIABETES MELLITUS
     Dosage: 5 U, TID
     Route: 058
     Dates: start: 201303
  3. LANTUS [Concomitant]
     Indication: DIABETES MELLITUS
     Dosage: 4 U, EACH MORNING
     Dates: start: 201303, end: 20130919
  4. LANTUS [Concomitant]
     Dosage: 6 U, EACH MORNING
     Dates: start: 20130920

REACTIONS (2)
  - Diabetes mellitus inadequate control [Recovered/Resolved]
  - Wrong drug administered [Recovered/Resolved]
